FAERS Safety Report 6386891-6 (Version None)
Quarter: 2009Q4

REPORT INFORMATION
  Report Type: 
  Country: None (occurrence: None)
  Receive Date: 20091001
  Receipt Date: 20091001
  Transmission Date: 20100525
  Serious: Yes (Life-Threatening)
  Sender: FDA-Public Use
  Company Number: None

PATIENT
  Age: 57 Year
  Sex: Female
  Weight: 197 kg

DRUGS (16)
  1. LOVENOX [Suspect]
     Indication: DEEP VEIN THROMBOSIS
     Dosage: 100MG Q12H SUBQ
     Route: 058
     Dates: start: 20090812, end: 20090814
  2. LOVENOX [Suspect]
     Indication: PULMONARY EMBOLISM
     Dosage: 100MG Q12H SUBQ
     Route: 058
     Dates: start: 20090812, end: 20090814
  3. DIAMOX SRC [Concomitant]
  4. ACTOS [Concomitant]
  5. CIPRO [Concomitant]
  6. ASPIRIN [Concomitant]
  7. JANUVIA [Concomitant]
  8. BACID [Concomitant]
  9. LIPITOR [Concomitant]
  10. LASIX [Concomitant]
  11. MEGASE [Concomitant]
  12. NOVOLIN 70/30 [Concomitant]
  13. MONISTAT 7 [Concomitant]
  14. BENADRYL [Concomitant]
  15. ATIVAN [Concomitant]
  16. ZOFRAN [Concomitant]

REACTIONS (2)
  - EPISTAXIS [None]
  - NO THERAPEUTIC RESPONSE [None]
